FAERS Safety Report 9670011 (Version 1)
Quarter: 2013Q4

REPORT INFORMATION
  Report Type: Spontaneous
  Country: MA (occurrence: MA)
  Receive Date: 20131105
  Receipt Date: 20131105
  Transmission Date: 20140711
  Serious: Yes (Other)
  Sender: FDA-Public Use
  Company Number: MA-WATSON-2013-19386

PATIENT
  Sex: Female

DRUGS (1)
  1. HYDROXOCOBALAMIN (WATSON LABORATORIES) [Suspect]
     Indication: ANAEMIA VITAMIN B12 DEFICIENCY
     Dosage: 0.1 MG, DAILY
     Route: 030

REACTIONS (1)
  - Tremor [Recovered/Resolved]
